FAERS Safety Report 11344781 (Version 1)
Quarter: 2015Q3

REPORT INFORMATION
  Report Type: Report from Study
  Country: US (occurrence: US)
  Receive Date: 20150806
  Receipt Date: 20150806
  Transmission Date: 20151125
  Serious: Yes (Hospitalization)
  Sender: FDA-Public Use
  Company Number: US-GLAXOSMITHKLINE INC.-US2015112485

PATIENT
  Sex: Male

DRUGS (3)
  1. VELETRI [Suspect]
     Active Substance: EPOPROSTENOL
     Indication: PRODUCT USED FOR UNKNOWN INDICATION
     Dosage: UNK
     Route: 065
  2. AMBRISENTAN [Suspect]
     Active Substance: AMBRISENTAN
     Indication: DRUG ABUSE
     Dosage: 10 MG, QD
     Route: 065
     Dates: start: 20130530
  3. AMBRISENTAN [Suspect]
     Active Substance: AMBRISENTAN
     Indication: PULMONARY ARTERIAL HYPERTENSION

REACTIONS (5)
  - Chest pain [Unknown]
  - Device malfunction [Unknown]
  - Dyspnoea [Unknown]
  - Flushing [Unknown]
  - Hypotension [Unknown]
